FAERS Safety Report 7877057-9 (Version None)
Quarter: 2011Q4

REPORT INFORMATION
  Report Type: 
  Country: None (occurrence: None)
  Receive Date: 20111031
  Receipt Date: 20110927
  Transmission Date: 20120403
  Serious: No
  Sender: FDA-Public Use
  Company Number: US-ABBOTT-11P-163-0859996-00

PATIENT
  Age: 93 Year
  Sex: Female

DRUGS (1)
  1. CREON DR [Suspect]
     Indication: PRODUCT USED FOR UNKNOWN INDICATION

REACTIONS (5)
  - PRURITUS [None]
  - ERYTHEMA [None]
  - URINARY TRACT INFECTION [None]
  - POLLAKIURIA [None]
  - NAUSEA [None]
